FAERS Safety Report 18151736 (Version 1)
Quarter: 2020Q3

REPORT INFORMATION
  Report Type: Report from Study
  Country: ES (occurrence: ES)
  Receive Date: 20200814
  Receipt Date: 20200814
  Transmission Date: 20201103
  Serious: Yes (Hospitalization)
  Sender: FDA-Public Use
  Company Number: ES-ACTELION-A-CH2020-202808

PATIENT
  Age: 56 Year
  Sex: Male
  Weight: 58 kg

DRUGS (5)
  1. OPSUMIT [Suspect]
     Active Substance: MACITENTAN
     Indication: PULMONARY ARTERIAL HYPERTENSION
     Dosage: 10 MG, QD
     Route: 048
     Dates: start: 20200219
  2. FUROSEMIDA [Concomitant]
     Active Substance: FUROSEMIDE
     Indication: CARDIAC FAILURE
     Dosage: UNK
     Route: 048
     Dates: start: 20191115
  3. REVATIO [Concomitant]
     Active Substance: SILDENAFIL CITRATE
     Indication: PULMONARY ARTERIAL HYPERTENSION
     Dosage: 60 MG, QD
     Route: 048
     Dates: start: 20191204
  4. LORMETAZEPAM [Concomitant]
     Active Substance: LORMETAZEPAM
     Indication: ANXIETY
     Dosage: UNK
     Route: 048
     Dates: start: 20181005
  5. SOFOSBUVIR W/VELPATASVIR [Concomitant]
     Active Substance: SOFOSBUVIR\VELPATASVIR
     Indication: HEPATITIS C
     Dosage: UNK
     Route: 048
     Dates: start: 20191124

REACTIONS (3)
  - Meningitis tuberculous [Unknown]
  - Pulmonary arterial hypertension [Unknown]
  - Disease progression [Unknown]

NARRATIVE: CASE EVENT DATE: 20200219
